FAERS Safety Report 7939160-4 (Version None)
Quarter: 2011Q4

REPORT INFORMATION
  Report Type: 
  Country: None (occurrence: None)
  Receive Date: 20111124
  Receipt Date: 20111028
  Transmission Date: 20120403
  Serious: Yes (Other)
  Sender: FDA-Public Use
  Company Number: DZ-ROCHE-1012793

PATIENT
  Age: 51 Year
  Sex: Female

DRUGS (2)
  1. COPEGUS [Suspect]
     Indication: HEPATITIS C
     Dates: start: 20100101, end: 20110101
  2. PEGASYS [Suspect]
     Indication: HEPATITIS C
     Dates: start: 20100101, end: 20110101

REACTIONS (9)
  - MUCOSAL ULCERATION [None]
  - CHEST PAIN [None]
  - PRURIGO [None]
  - MUSCULOSKELETAL PAIN [None]
  - ASTHMATIC CRISIS [None]
  - ABDOMINAL PAIN UPPER [None]
  - ASTHENIA [None]
  - PYREXIA [None]
  - INSOMNIA [None]
